FAERS Safety Report 6336922-4 (Version None)
Quarter: 2009Q3

REPORT INFORMATION
  Report Type: 
  Country: None (occurrence: None)
  Receive Date: 20090901
  Receipt Date: 20090827
  Transmission Date: 20100115
  Serious: Yes (Hospitalization)
  Sender: FDA-Public Use
  Company Number: FR-GENENTECH-286947

PATIENT
  Sex: Female
  Weight: 52 kg

DRUGS (11)
  1. LUCENTIS [Suspect]
     Indication: MACULAR DEGENERATION
     Dosage: UNK
     Route: 031
     Dates: start: 20080916
  2. LUCENTIS [Suspect]
     Dosage: UNK
     Route: 031
     Dates: start: 20081021
  3. LUCENTIS [Suspect]
     Dosage: UNK
     Route: 031
     Dates: start: 20081125
  4. LUCENTIS [Suspect]
     Dosage: UNK
     Route: 031
     Dates: start: 20090210
  5. LUCENTIS [Suspect]
     Dosage: UNK
     Route: 031
     Dates: start: 20090428
  6. TRANDATE [Concomitant]
     Indication: DRUG USE FOR UNKNOWN INDICATION
  7. ATENOLOL [Concomitant]
     Indication: DRUG USE FOR UNKNOWN INDICATION
  8. PLAVIX [Concomitant]
     Indication: DRUG USE FOR UNKNOWN INDICATION
  9. KARDEGIC [Concomitant]
     Indication: DRUG USE FOR UNKNOWN INDICATION
  10. FLUDEX [Concomitant]
     Indication: DRUG USE FOR UNKNOWN INDICATION
  11. DIFFU K [Suspect]
     Indication: DRUG USE FOR UNKNOWN INDICATION

REACTIONS (1)
  - MYOCARDIAL INFARCTION [None]
